FAERS Safety Report 7405174-6 (Version None)
Quarter: 2011Q2

REPORT INFORMATION
  Report Type: 
  Country: None (occurrence: None)
  Receive Date: 20110411
  Receipt Date: 20110331
  Transmission Date: 20111010
  Serious: Yes (Other)
  Sender: FDA-Public Use
  Company Number: DE-ELI_LILLY_AND_COMPANY-DE201102002922

PATIENT
  Age: 73 Year
  Sex: Male
  Weight: 73 kg

DRUGS (6)
  1. NIFEDIPINE [Concomitant]
     Dosage: 10 MG, UNK
  2. CIALIS [Suspect]
     Dosage: 20 MG, AS NEEDED
     Route: 048
  3. ANTIHYPERTENSIVES [Concomitant]
  4. SORTIS [Concomitant]
     Dosage: 10 MG, UNK
  5. RAMIPRIL [Concomitant]
     Dosage: 5 MG, UNK
  6. CIALIS [Suspect]
     Indication: ERECTILE DYSFUNCTION
     Dosage: 5 MG, DAILY (1/D)
     Route: 048

REACTIONS (1)
  - RETINAL DETACHMENT [None]
